FAERS Safety Report 9392776 (Version 2)
Quarter: 2013Q3

REPORT INFORMATION
  Report Type: Spontaneous
  Country: DE (occurrence: DE)
  Receive Date: 20130710
  Receipt Date: 20130808
  Transmission Date: 20140515
  Serious: Yes (Hospitalization, Other)
  Sender: FDA-Public Use
  Company Number: DE-MPIJNJ-2013-05189

PATIENT
  Sex: 0

DRUGS (5)
  1. VELCADE [Suspect]
     Indication: AMYLOIDOSIS
     Dosage: 2.1 MG, UNK
     Route: 042
     Dates: start: 20130325, end: 20130604
  2. VELCADE [Suspect]
     Indication: PLASMA CELL MYELOMA
     Dosage: 2.1 MG, UNK
     Route: 058
     Dates: start: 20130328, end: 20130711
  3. CYCLOPHOSPHAMIDE [Suspect]
     Indication: AMYLOIDOSIS
     Dosage: 370 MG, CYCLIC
     Route: 065
     Dates: start: 20130325, end: 20130722
  4. DEXAMETHASONE [Suspect]
     Indication: AMYLOIDOSIS
     Dosage: 20 MG, CYCLIC
     Route: 048
     Dates: start: 20130325
  5. DEXAMETHASONE [Suspect]
     Dosage: 20 MG, UNK
     Route: 042
     Dates: end: 20130722

REACTIONS (5)
  - Agnosia [Recovered/Resolved]
  - Apraxia [Recovered/Resolved]
  - Dementia [Unknown]
  - Hyponatraemia [Unknown]
  - Oedema peripheral [Recovered/Resolved]
